FAERS Safety Report 25771927 (Version 5)
Quarter: 2025Q4

REPORT INFORMATION
  Report Type: Spontaneous
  Country: US (occurrence: US)
  Receive Date: 20250908
  Receipt Date: 20251107
  Transmission Date: 20260118
  Serious: Yes (Death, Life-Threatening, Hospitalization, Other)
  Sender: NOVARTIS
  Company Number: US-002147023-NVSC2025US138879

PATIENT
  Age: 58 Year
  Sex: Male
  Weight: 58.5 kg

DRUGS (4)
  1. FABHALTA [Suspect]
     Active Substance: IPTACOPAN HYDROCHLORIDE
     Indication: C3 glomerulopathy
     Dosage: UNK
     Route: 065
     Dates: start: 20250624
  2. FABHALTA [Suspect]
     Active Substance: IPTACOPAN HYDROCHLORIDE
     Dosage: 200 MG, BID
     Route: 048
     Dates: start: 20250902
  3. LISINOPRIL [Suspect]
     Active Substance: LISINOPRIL
     Indication: Proteinuria
     Route: 065
  4. FARXIGA [Suspect]
     Active Substance: DAPAGLIFLOZIN PROPANEDIOL
     Indication: Proteinuria
     Dosage: UNK
     Route: 065

REACTIONS (23)
  - Meningococcal infection [Fatal]
  - Encephalopathy [Fatal]
  - Acute kidney injury [Fatal]
  - Chronic kidney disease [Fatal]
  - Acute myocardial infarction [Fatal]
  - Ileus [Fatal]
  - Peripheral vascular disorder [Fatal]
  - Hepatic failure [Fatal]
  - Acute respiratory distress syndrome [Fatal]
  - Thrombocytopenia [Fatal]
  - Platelet count decreased [Fatal]
  - Ejection fraction decreased [Fatal]
  - Troponin increased [Fatal]
  - Respiratory failure [Not Recovered/Not Resolved]
  - Agitation [Unknown]
  - Malaise [Unknown]
  - Dyspnoea [Unknown]
  - Disseminated intravascular coagulation [Unknown]
  - Shock [Unknown]
  - Renal failure [Unknown]
  - Sepsis [Unknown]
  - Rash [Unknown]
  - General physical health deterioration [Unknown]

NARRATIVE: CASE EVENT DATE: 20250902
